FAERS Safety Report 5803203-4 (Version None)
Quarter: 2008Q2

REPORT INFORMATION
  Report Type: 
  Country: None (occurrence: None)
  Receive Date: 20080627
  Receipt Date: 20080226
  Transmission Date: 20081010
  Serious: Yes (Other)
  Sender: FDA-Public Use
  Company Number: 551101

PATIENT
  Age: 68 Year
  Sex: Male

DRUGS (1)
  1. INTERFERON ALFA (INTERFERON ALFA) [Suspect]
     Indication: MACULAR DEGENERATION
     Dosage: 30000000 UNIT DAILY SUBCUTANEOUS
     Route: 058

REACTIONS (1)
  - RETINOPATHY [None]
